FAERS Safety Report 24660470 (Version 1)
Quarter: 2024Q4

REPORT INFORMATION
  Report Type: Spontaneous
  Country: CN (occurrence: CN)
  Receive Date: 20241125
  Receipt Date: 20241125
  Transmission Date: 20250115
  Serious: Yes (Other)
  Sender: BAYER HEALTHCARE PHARMACEUTICALS INC.
  Company Number: CN-BAYER-2024A164032

PATIENT
  Age: 67 Year
  Sex: Male
  Weight: 54 kg

DRUGS (2)
  1. KOVALTRY [Suspect]
     Active Substance: ANTIHEMOPHILIC FACTOR, HUMAN RECOMBINANT
     Indication: Hepatic cancer
     Dosage: 200 MG, QD
     Route: 041
     Dates: start: 20240402, end: 20240402
  2. SINTILIMAB [Concomitant]
     Active Substance: SINTILIMAB
     Indication: Hepatic cancer
     Dosage: UNK
     Dates: start: 20240402, end: 20240515

REACTIONS (3)
  - Myelosuppression [Recovering/Resolving]
  - Product prescribing issue [None]
  - Product use in unapproved indication [None]

NARRATIVE: CASE EVENT DATE: 20240402
